FAERS Safety Report 22151668 (Version 1)
Quarter: 2023Q1

REPORT INFORMATION
  Report Type: Spontaneous
  Country: US (occurrence: US)
  Receive Date: 20230329
  Receipt Date: 20230329
  Transmission Date: 20230417
  Serious: No
  Sender: FDA-Public Use
  Company Number: 2023MPSPO00005

PATIENT
  Age: 78 Year
  Sex: Female
  Weight: 86.168 kg

DRUGS (1)
  1. CYANOCOBALAMIN [Suspect]
     Active Substance: CYANOCOBALAMIN
     Indication: Vitamin B12 deficiency
     Dosage: 1000 UG, MONTHLY
     Route: 065
     Dates: start: 20230111

REACTIONS (6)
  - Scratch [Not Recovered/Not Resolved]
  - Injection site mass [Not Recovered/Not Resolved]
  - Formication [Not Recovered/Not Resolved]
  - Malabsorption from injection site [Not Recovered/Not Resolved]
  - Product substitution issue [Unknown]
  - Injection site pruritus [Not Recovered/Not Resolved]

NARRATIVE: CASE EVENT DATE: 20230111
